FAERS Safety Report 10358017 (Version 2)
Quarter: 2014Q3

REPORT INFORMATION
  Report Type: Spontaneous
  Country: AT (occurrence: AT)
  Receive Date: 20140801
  Receipt Date: 20140811
  Transmission Date: 20150326
  Serious: Yes (Life-Threatening, Hospitalization)
  Sender: FDA-Public Use
  Company Number: AT-BAYER-2014-111445

PATIENT
  Age: 45 Year
  Sex: Female
  Weight: 108 kg

DRUGS (2)
  1. YASMIN [Suspect]
     Active Substance: DROSPIRENONE\ETHINYL ESTRADIOL
     Dosage: UNK
     Dates: end: 201207
  2. EUTHYROX [Concomitant]
     Active Substance: LEVOTHYROXINE SODIUM

REACTIONS (14)
  - Atrial fibrillation [None]
  - Pulmonary embolism [None]
  - Cough [None]
  - Fatigue [None]
  - Fear [None]
  - Presyncope [None]
  - Gait disturbance [None]
  - Dyspnoea exertional [None]
  - Syncope [None]
  - Post-tussive vomiting [None]
  - Sleep disorder [Recovered/Resolved]
  - General physical health deterioration [None]
  - Tachypnoea [None]
  - Dyspnoea [None]

NARRATIVE: CASE EVENT DATE: 2009
